FAERS Safety Report 8918535 (Version 3)
Quarter: 2013Q1

REPORT INFORMATION
  Report Type: Report from Study
  Country: JP (occurrence: JP)
  Receive Date: 20121120
  Receipt Date: 20130204
  Transmission Date: 20140127
  Serious: Yes (Death, Life-Threatening)
  Sender: FDA-Public Use
  Company Number: JP-ROCHE-1154671

PATIENT
  Age: 74 Year
  Sex: Female

DRUGS (27)
  1. TOCILIZUMAB [Suspect]
     Indication: RHEUMATOID ARTHRITIS
     Route: 041
     Dates: start: 20081030, end: 20100511
  2. TOCILIZUMAB [Suspect]
     Indication: RHEUMATOID ARTHRITIS
     Route: 041
     Dates: start: 20100708, end: 20101207
  3. OSELTAMIVIR [Suspect]
     Indication: PRODUCT USED FOR UNKNOWN INDICATION
     Dosage: DOSAGE IS UNCERTAIN.
     Route: 048
     Dates: start: 20110126, end: 20110203
  4. METHOTREXATE [Suspect]
     Indication: RHEUMATOID ARTHRITIS
     Route: 048
     Dates: start: 20060707, end: 20110126
  5. PREDNISOLONE [Suspect]
     Indication: RHEUMATOID ARTHRITIS
     Route: 048
     Dates: start: 20070707, end: 20081215
  6. PREDNISOLONE [Suspect]
     Indication: RHEUMATOID ARTHRITIS
     Route: 048
     Dates: start: 20081216, end: 20090302
  7. PREDNISOLONE [Suspect]
     Indication: RHEUMATOID ARTHRITIS
     Route: 048
     Dates: start: 20090303, end: 2009
  8. PREDNISOLONE [Suspect]
     Indication: RHEUMATOID ARTHRITIS
     Route: 048
     Dates: end: 20110126
  9. MINOCYCLINE HYDROCHLORIDE [Suspect]
     Indication: PRODUCT USED FOR UNKNOWN INDICATION
     Dosage: DOSAGE IS UNCERTAIN.
     Route: 065
     Dates: start: 20110121, end: 20110204
  10. CIPROFLOXACIN HYDROCHLORIDE [Suspect]
     Indication: PRODUCT USED FOR UNKNOWN INDICATION
     Dosage: DOSAGE IS UNCERTAIN.
     Route: 065
     Dates: start: 20110126
  11. VORICONAZOLE [Suspect]
     Indication: PRODUCT USED FOR UNKNOWN INDICATION
     Dosage: DOSAGE IS UNCERTAIN.
     Route: 042
     Dates: start: 20110126, end: 20110203
  12. SULFAMETHOXAZOLE/TRIMETHOPRIM [Suspect]
     Indication: PRODUCT USED FOR UNKNOWN INDICATION
     Route: 048
     Dates: start: 20110121, end: 20110203
  13. SULFAMETHOXAZOLE/TRIMETHOPRIM [Suspect]
     Route: 048
     Dates: start: 20110204
  14. CALFINA [Concomitant]
     Indication: PROPHYLAXIS
     Route: 048
     Dates: start: 20071201, end: 20110126
  15. CLARITH [Concomitant]
     Indication: PROPHYLAXIS
     Route: 048
     Dates: start: 20071201, end: 20110126
  16. PYDOXAL [Concomitant]
     Indication: PROPHYLAXIS
     Dosage: 10 TO 30MG
     Route: 048
     Dates: start: 20071201, end: 20110126
  17. PYDOXAL [Concomitant]
     Route: 048
     Dates: start: 20071201, end: 20110126
  18. OPALMON [Concomitant]
     Route: 048
  19. ALENDRONATE SODIUM [Concomitant]
     Indication: PROPHYLAXIS
     Route: 048
     Dates: start: 20071201, end: 20110126
  20. FOLIAMIN [Concomitant]
     Indication: PROPHYLAXIS
     Route: 048
     Dates: start: 20071201, end: 20110126
  21. LORFENAMIN [Concomitant]
     Indication: RHEUMATOID ARTHRITIS
     Route: 048
     Dates: end: 20081215
  22. CYTOTEC [Concomitant]
     Indication: PROPHYLAXIS
     Route: 048
     Dates: end: 20081215
  23. AMOBAN [Concomitant]
     Route: 048
  24. OMEPRAZON [Concomitant]
     Indication: PROPHYLAXIS
     Dosage: 10 TO 20MG
     Route: 048
     Dates: start: 20071201, end: 20110126
  25. VENILON [Concomitant]
     Indication: PROPHYLAXIS
     Route: 042
     Dates: start: 20110125, end: 20110127
  26. CALONAL [Concomitant]
     Route: 048
     Dates: start: 20110126
  27. MEROPEN (JAPAN) [Concomitant]

REACTIONS (3)
  - Interstitial lung disease [Fatal]
  - Liver disorder [Not Recovered/Not Resolved]
  - Nasopharyngitis [Recovered/Resolved]
